FAERS Safety Report 9526214 (Version 1)
Quarter: 2013Q3

REPORT INFORMATION
  Report Type: Spontaneous
  Country: US (occurrence: US)
  Receive Date: 20130916
  Receipt Date: 20130916
  Transmission Date: 20140515
  Serious: Yes (Other)
  Sender: FDA-Public Use
  Company Number: US-PFIZER INC-2013263328

PATIENT
  Sex: Female

DRUGS (5)
  1. LIPITOR [Suspect]
     Indication: VENTRICULAR ARRHYTHMIA
     Dosage: 10 MG, 1X/DAY
     Route: 048
     Dates: start: 1996
  2. LIPITOR [Suspect]
     Dosage: 10 MG, 1X/DAY
     Route: 048
  3. ATENOLOL [Concomitant]
     Dosage: UNK
  4. ASPIRIN [Concomitant]
     Dosage: UNK
  5. CALCIUM [Concomitant]
     Dosage: 1000 MG, 1X/DAY

REACTIONS (2)
  - Diabetes mellitus [Unknown]
  - Off label use [Unknown]
